FAERS Safety Report 4637148-2 (Version None)
Quarter: 2005Q2

REPORT INFORMATION
  Report Type: 
  Country: None (occurrence: None)
  Receive Date: 20050325
  Receipt Date: 20050111
  Transmission Date: 20051028
  Serious: No
  Sender: FDA-Public Use
  Company Number: USA040977489

PATIENT
  Age: 77 Year
  Sex: Female
  Weight: 47 kg

DRUGS (11)
  1. FORTEO [Suspect]
     Indication: OSTEOPOROSIS
     Dates: start: 20040801
  2. EVISTA [Suspect]
     Indication: OSTEOPOROSIS
     Dosage: 60 MG/1 DAY
     Dates: start: 20020101
  3. CELEBREX [Concomitant]
  4. ASPIRIN [Concomitant]
  5. PERIACTIN [Concomitant]
  6. BUTALBITAL W/ ASPIRIN + CAFFEINE [Concomitant]
  7. SERZONE [Concomitant]
  8. IMITREX [Concomitant]
  9. ZELNORM [Concomitant]
  10. VITAMINS NOS [Concomitant]
  11. HYOSCYAMINE [Concomitant]

REACTIONS (7)
  - ABDOMINAL PAIN UPPER [None]
  - CONSTIPATION [None]
  - DIARRHOEA [None]
  - NAUSEA [None]
  - OSTEOPOROSIS [None]
  - RECTAL HAEMORRHAGE [None]
  - WEIGHT DECREASED [None]
